FAERS Safety Report 5900143-7 (Version None)
Quarter: 2008Q3

REPORT INFORMATION
  Report Type: 
  Country: None (occurrence: None)
  Receive Date: 20080926
  Receipt Date: 20080918
  Transmission Date: 20090109
  Serious: Yes (Hospitalization, Other)
  Sender: FDA-Public Use
  Company Number: JP-MERCK-0809USA01799

PATIENT
  Age: 17 Year
  Sex: Male
  Weight: 42 kg

DRUGS (3)
  1. SINGULAIR [Suspect]
     Indication: ASTHMA
     Route: 048
     Dates: start: 20080715, end: 20080909
  2. THEO-DUR [Concomitant]
     Indication: ASTHMA
     Route: 048
     Dates: start: 20080715, end: 20080909
  3. ADOAIR [Concomitant]
     Indication: ASTHMA
     Dates: start: 20080715, end: 20080909

REACTIONS (2)
  - EOSINOPHIL COUNT INCREASED [None]
  - EOSINOPHILIC CELLULITIS [None]
